FAERS Safety Report 10234176 (Version 1)
Quarter: 2014Q2

REPORT INFORMATION
  Report Type: Spontaneous
  Country: US (occurrence: US)
  Receive Date: 20140612
  Receipt Date: 20140612
  Transmission Date: 20141212
  Serious: Yes (Other)
  Sender: FDA-Public Use
  Company Number: US-GLAXOSMITHKLINE-B1003307A

PATIENT
  Age: 52 Year
  Sex: Male

DRUGS (3)
  1. DULOXETINE [Suspect]
     Indication: DEPRESSION
     Route: 065
  2. FLUTICASONE [Suspect]
     Indication: RHINITIS ALLERGIC
     Route: 045
  3. MESALAMINE [Concomitant]
     Indication: COLITIS ULCERATIVE
     Route: 065

REACTIONS (9)
  - Cushing^s syndrome [Recovered/Resolved]
  - Drug interaction [Unknown]
  - Muscular weakness [Unknown]
  - Fatigue [Unknown]
  - Night sweats [Unknown]
  - Weight increased [Unknown]
  - Central obesity [Unknown]
  - Oedema peripheral [Unknown]
  - Cortisol free urine increased [Unknown]
